FAERS Safety Report 19247080 (Version 1)
Quarter: 2021Q2

REPORT INFORMATION
  Report Type: Report from Study
  Country: US (occurrence: US)
  Receive Date: 20210512
  Receipt Date: 20210512
  Transmission Date: 20210717
  Serious: Yes (Death, Hospitalization)
  Sender: FDA-Public Use
  Company Number: US-ACCORD-225034

PATIENT
  Age: 70 Year
  Sex: Male
  Weight: 103.9 kg

DRUGS (3)
  1. FLUOROURACIL. [Suspect]
     Active Substance: FLUOROURACIL
     Indication: CHOLANGIOCARCINOMA
     Dosage: Q2W
     Route: 042
     Dates: start: 20210112, end: 20210222
  2. IRINOTECAN [Suspect]
     Active Substance: IRINOTECAN
     Indication: CHOLANGIOCARCINOMA
     Dosage: Q2W
     Route: 042
     Dates: start: 20210112, end: 20210222
  3. LEUCOVORIN. [Suspect]
     Active Substance: LEUCOVORIN
     Indication: CHOLANGIOCARCINOMA
     Dosage: Q2W
     Route: 042
     Dates: start: 20210112, end: 20210222

REACTIONS (7)
  - Death [Fatal]
  - Urinary tract infection [Unknown]
  - Oedema peripheral [Unknown]
  - Weight increased [Unknown]
  - Abdominal distension [Unknown]
  - Hepatic cirrhosis [Recovered/Resolved]
  - Off label use [Unknown]

NARRATIVE: CASE EVENT DATE: 20210303
